FAERS Safety Report 4385648-5 (Version None)
Quarter: 2004Q2

REPORT INFORMATION
  Report Type: 
  Country: None (occurrence: None)
  Receive Date: 20040622
  Receipt Date: 20040610
  Transmission Date: 20050107
  Serious: No
  Sender: FDA-Public Use
  Company Number: 04P-150-0263688-00

PATIENT
  Age: 54 Year
  Sex: Female

DRUGS (3)
  1. HUMIRA [Suspect]
     Indication: ARTHRITIS
     Dosage: 40 MG, 1 IN 2 WK, SUBCUTANEOUS
     Route: 058
     Dates: start: 20040209, end: 20040324
  2. METHOTREXATE [Concomitant]
  3. FOLACIN [Concomitant]

REACTIONS (3)
  - CATARACT [None]
  - KERATOCONJUNCTIVITIS SICCA [None]
  - MACULAR DEGENERATION [None]
